FAERS Safety Report 8454313-7 (Version None)
Quarter: 2012Q2

REPORT INFORMATION
  Report Type: 
  Country: None (occurrence: None)
  Receive Date: 20120620
  Receipt Date: 20120530
  Transmission Date: 20120825
  Serious: Yes (Hospitalization)
  Sender: FDA-Public Use
  Company Number: PHHY2012CN051748

PATIENT
  Age: 69 Year
  Sex: Female

DRUGS (1)
  1. ZOLEDRONOC ACID [Suspect]
     Indication: OSTEOPOROSIS
     Dosage: 5 MG/100 ML
     Route: 042

REACTIONS (12)
  - VOMITING [None]
  - INFLAMMATION [None]
  - INFLUENZA LIKE ILLNESS [None]
  - PYREXIA [None]
  - NAUSEA [None]
  - GLYCOSYLATED HAEMOGLOBIN INCREASED [None]
  - MENTAL STATUS CHANGES [None]
  - PALPITATIONS [None]
  - MALAISE [None]
  - TENDERNESS [None]
  - DRY MOUTH [None]
  - HEADACHE [None]
